FAERS Safety Report 6338710-1 (Version None)
Quarter: 2009Q3

REPORT INFORMATION
  Report Type: 
  Country: None (occurrence: None)
  Receive Date: 20090831
  Receipt Date: 20090630
  Transmission Date: 20100115
  Serious: Yes (Hospitalization)
  Sender: FDA-Public Use
  Company Number: 200346USA

PATIENT
  Age: 51 Year
  Sex: Female

DRUGS (7)
  1. LISINOPRIL [Suspect]
     Indication: HYPERTENSION
     Dosage: 10 MG (10 MG, 1 IN 1 D), ORAL
     Route: 048
     Dates: start: 20070101, end: 20090601
  2. COVAAR [Concomitant]
  3. GLICLAZIDE [Concomitant]
  4. METFORMIN HCL [Concomitant]
  5. CARVEDILOL [Concomitant]
  6. AMLODIPINE [Concomitant]
  7. ACETYLSALICYLIC ACID [Concomitant]

REACTIONS (7)
  - ASTHENIA [None]
  - DYSPHONIA [None]
  - DYSPNOEA [None]
  - FATIGUE [None]
  - HYPOAESTHESIA ORAL [None]
  - PARAESTHESIA ORAL [None]
  - SWOLLEN TONGUE [None]
